FAERS Safety Report 6749647-8 (Version None)
Quarter: 2010Q2

REPORT INFORMATION
  Report Type: 
  Country: None (occurrence: None)
  Receive Date: 20100601
  Receipt Date: 20100528
  Transmission Date: 20101027
  Serious: Yes (Life-Threatening)
  Sender: FDA-Public Use
  Company Number: B0640777A

PATIENT
  Sex: Female
  Weight: 62 kg

DRUGS (6)
  1. TYKERB [Suspect]
     Indication: BREAST CANCER
     Dosage: 1250MG PER DAY
     Route: 048
     Dates: start: 20100215, end: 20100304
  2. XELODA [Suspect]
     Indication: DRUG USE FOR UNKNOWN INDICATION
     Dosage: 3000MG PER DAY
     Route: 048
     Dates: start: 20100215, end: 20100304
  3. NIFESLOW [Concomitant]
     Indication: HYPERTENSION
     Route: 048
     Dates: end: 20100310
  4. OLMESARTAN MEDOXOMIL [Concomitant]
     Indication: HYPERTENSION
     Route: 048
     Dates: end: 20100310
  5. CEFAZOLIN SODIUM [Concomitant]
     Indication: ENTEROCOLITIS
     Route: 042
     Dates: start: 20100310, end: 20100315
  6. DOPAMINE HYDROCHLORIDE [Concomitant]
     Indication: CIRCULATORY COLLAPSE
     Route: 042
     Dates: start: 20100310, end: 20100315

REACTIONS (3)
  - DIARRHOEA [None]
  - PALMAR-PLANTAR ERYTHRODYSAESTHESIA SYNDROME [None]
  - RENAL FAILURE ACUTE [None]
